FAERS Safety Report 4801085-0 (Version None)
Quarter: 2005Q4

REPORT INFORMATION
  Report Type: 
  Country: None (occurrence: None)
  Receive Date: 20051011
  Receipt Date: 20051007
  Transmission Date: 20060501
  Serious: Yes (Other)
  Sender: FDA-Public Use
  Company Number: GBWYE940230AUG05

PATIENT
  Age: 38 Year
  Sex: Female

DRUGS (3)
  1. EFFEXOR [Suspect]
     Dosage: SEE IMAGE
     Route: 048
     Dates: start: 20050801, end: 20050101
  2. EFFEXOR [Suspect]
     Dosage: SEE IMAGE
     Route: 048
     Dates: end: 20050801
  3. .. [Suspect]

REACTIONS (3)
  - ABORTION SPONTANEOUS [None]
  - DRUG EXPOSURE DURING PREGNANCY [None]
  - PREGNANCY [None]
